FAERS Safety Report 18896554 (Version 1)
Quarter: 2021Q1

REPORT INFORMATION
  Report Type: Spontaneous
  Country: US (occurrence: US)
  Receive Date: 20210211
  Receipt Date: 20210211
  Transmission Date: 20210420
  Serious: Yes (Hospitalization)
  Sender: FDA-Public Use
  Company Number: None

PATIENT
  Age: 72 Year
  Sex: Male

DRUGS (1)
  1. TECHNETIUM TC?99M MEDRONATE [Suspect]
     Active Substance: TECHNETIUM TC-99M MEDRONATE
     Indication: BONE SCAN
     Route: 042
     Dates: start: 20201124, end: 20201124

REACTIONS (3)
  - Chest discomfort [None]
  - Vision blurred [None]
  - Dyspnoea [None]

NARRATIVE: CASE EVENT DATE: 20201124
